FAERS Safety Report 15882557 (Version 1)
Quarter: 2019Q1

REPORT INFORMATION
  Report Type: Report from Study
  Country: CA (occurrence: CA)
  Receive Date: 20190129
  Receipt Date: 20190129
  Transmission Date: 20190417
  Serious: Yes (Other)
  Sender: FDA-Public Use
  Company Number: CA-TEVA-2019-CA-1004834

PATIENT
  Age: 58 Year
  Sex: Female

DRUGS (10)
  1. FLOVENT DISKUS [Suspect]
     Active Substance: FLUTICASONE PROPIONATE
     Indication: ASTHMA
     Dosage: 2 DOSAGE FORMS DAILY;
     Route: 055
  2. MEPOLIZUMAB [Suspect]
     Active Substance: MEPOLIZUMAB
     Route: 042
  3. PROLIA PRE-FILLED SYRINGE.PRESERVATIVE-FREE. [Concomitant]
     Indication: OSTEOPOROSIS PROPHYLAXIS
     Route: 058
  4. ADVAIR HFA [Suspect]
     Active Substance: FLUTICASONE PROPIONATE\SALMETEROL XINAFOATE
     Indication: ASTHMA
     Dosage: 4 DOSAGE FORMS DAILY;
     Route: 055
  5. PREDNISONE. [Suspect]
     Active Substance: PREDNISONE
     Indication: DYSPNOEA
     Route: 065
  6. MEPOLIZUMAB [Suspect]
     Active Substance: MEPOLIZUMAB
     Indication: PRODUCT USED FOR UNKNOWN INDICATION
     Route: 042
  7. SINGULAIR [Suspect]
     Active Substance: MONTELUKAST SODIUM
     Indication: PRODUCT USED FOR UNKNOWN INDICATION
     Dosage: 10 MILLIGRAM DAILY;
     Route: 065
  8. AVAMYS [Suspect]
     Active Substance: FLUTICASONE FUROATE
     Indication: ASTHMA
     Route: 065
  9. MEPOLIZUMAB [Suspect]
     Active Substance: MEPOLIZUMAB
     Indication: ASTHMA
     Route: 042
  10. VENTOLIN [Suspect]
     Active Substance: ALBUTEROL SULFATE
     Indication: ASTHMA
     Route: 065

REACTIONS (17)
  - Eosinophilic granulomatosis with polyangiitis [Unknown]
  - Nasal congestion [Unknown]
  - Arthralgia [Unknown]
  - Nasal polyps [Unknown]
  - Sinusitis [Unknown]
  - Wheezing [Unknown]
  - Condition aggravated [Unknown]
  - Back pain [Unknown]
  - Chest discomfort [Unknown]
  - Eosinophilia [Unknown]
  - Musculoskeletal pain [Unknown]
  - Nasal obstruction [Unknown]
  - Paranasal sinus discomfort [Unknown]
  - Drug dependence [Unknown]
  - Therapeutic response decreased [Unknown]
  - Weight increased [Unknown]
  - Dyspnoea [Unknown]
